FAERS Safety Report 12934027 (Version 2)
Quarter: 2016Q4

REPORT INFORMATION
  Report Type: Spontaneous
  Country: US (occurrence: US)
  Receive Date: 20161111
  Receipt Date: 20161123
  Transmission Date: 20170207
  Serious: No
  Sender: FDA-Public Use
  Company Number: US-BAYER-2016-208200

PATIENT
  Sex: Female

DRUGS (1)
  1. CLIMARA PRO [Suspect]
     Active Substance: ESTRADIOL\LEVONORGESTREL
     Route: 062

REACTIONS (8)
  - Application site infection [None]
  - Product use issue [None]
  - Product adhesion issue [None]
  - Drug ineffective [None]
  - Application site hypersensitivity [None]
  - Application site pruritus [None]
  - Drug dispensing error [None]
  - Wrong technique in product usage process [None]
